FAERS Safety Report 7112856-2 (Version None)
Quarter: 2010Q4

REPORT INFORMATION
  Report Type: 
  Country: None (occurrence: None)
  Receive Date: 20101119
  Receipt Date: 20091104
  Transmission Date: 20110411
  Serious: No
  Sender: FDA-Public Use
  Company Number: US-BRISTOL-MYERS SQUIBB COMPANY-14850218

PATIENT
  Age: 71 Year
  Sex: Female

DRUGS (3)
  1. AVALIDE [Suspect]
     Indication: BLOOD PRESSURE ABNORMAL
  2. TENORMIN [Suspect]
     Indication: BLOOD PRESSURE ABNORMAL
  3. NORVASC [Suspect]
     Indication: BLOOD PRESSURE ABNORMAL

REACTIONS (1)
  - BLOOD PRESSURE INADEQUATELY CONTROLLED [None]
